FAERS Safety Report 22587924 (Version 1)
Quarter: 2023Q2

REPORT INFORMATION
  Report Type: Spontaneous
  Country: US (occurrence: US)
  Receive Date: 20230612
  Receipt Date: 20230612
  Transmission Date: 20230722
  Serious: Yes (Other)
  Sender: FDA-Public Use
  Company Number: US-NOVITIUMPHARMA-2023USNVP00881

PATIENT
  Age: 33 Year
  Sex: Female

DRUGS (2)
  1. MELOXICAM [Suspect]
     Active Substance: MELOXICAM
     Indication: Rheumatoid arthritis
  2. TIZANIDINE [Concomitant]
     Active Substance: TIZANIDINE
     Indication: Rheumatoid arthritis

REACTIONS (1)
  - Autoimmune hepatitis [Recovering/Resolving]
